FAERS Safety Report 9432439 (Version 1)
Quarter: 2013Q3

REPORT INFORMATION
  Report Type: Spontaneous
  Country: US (occurrence: US)
  Receive Date: 20130731
  Receipt Date: 20130731
  Transmission Date: 20140515
  Serious: Yes (Other)
  Sender: FDA-Public Use
  Company Number: US-PFIZER INC-2013218764

PATIENT
  Age: 49 Year
  Sex: Male
  Weight: 136 kg

DRUGS (5)
  1. ATIVAN [Suspect]
     Indication: ANXIETY
     Dosage: UNK
  2. METOPROLOL TARTRATE [Suspect]
     Indication: HYPERTENSION
     Dosage: 25 MG, DAILY
  3. EFFEXOR [Suspect]
     Indication: DEPRESSION
     Dosage: UNK
     Dates: start: 201202, end: 201206
  4. EFFEXOR [Suspect]
     Indication: ANXIETY
  5. PREDNISONE [Suspect]
     Indication: OROPHARYNGEAL PAIN

REACTIONS (11)
  - Aggression [Recovered/Resolved]
  - Imprisonment [Unknown]
  - Theft [Recovered/Resolved]
  - Mania [Recovered/Resolved]
  - Hypersexuality [Recovered/Resolved]
  - Abnormal behaviour [Recovered/Resolved]
  - Affective disorder [Recovered/Resolved]
  - Drug abuse [Recovered/Resolved]
  - Insomnia [Recovered/Resolved]
  - Abnormal dreams [Recovered/Resolved]
  - Emotional disorder [Recovered/Resolved]
